FAERS Safety Report 4353667-0 (Version None)
Quarter: 2004Q2

REPORT INFORMATION
  Report Type: 
  Country: None (occurrence: None)
  Receive Date: 20040430
  Receipt Date: 20040423
  Transmission Date: 20050107
  Serious: Yes (Hospitalization)
  Sender: FDA-Public Use
  Company Number: 2004203561JP

PATIENT
  Age: 10 Year
  Sex: Male

DRUGS (5)
  1. LUVOX [Suspect]
     Indication: AUTISM
     Dosage: 75 MG/DAY, ORAL
     Route: 048
     Dates: start: 20031021, end: 20040203
  2. ALPRAZOLAM [Suspect]
     Indication: AUTISM
     Dosage: 0.8 MG/DAY, ORAL
     Route: 048
     Dates: start: 20031018, end: 20040203
  3. HALOPERIDOL [Suspect]
     Indication: AUTISM
     Dosage: 3 MG/DAY, ORAL
     Route: 048
     Dates: start: 20031018, end: 20040203
  4. NEULEPTIL (PERICIAZINE) [Suspect]
     Indication: AUTISM
     Dosage: 5MG/DAY, ORAL
     Route: 048
     Dates: start: 20040127, end: 20040203
  5. TEGRETOL [Suspect]
     Indication: AUTISM
     Dosage: 200 MG/DAY, ORAL
     Route: 048
     Dates: start: 20040106, end: 20040201

REACTIONS (3)
  - DRUG ERUPTION [None]
  - LYMPHOCYTE STIMULATION TEST POSITIVE [None]
  - PYREXIA [None]
